FAERS Safety Report 9760359 (Version 2)
Quarter: 2015Q3

REPORT INFORMATION
  Report Type: Spontaneous
  Country: US (occurrence: US)
  Receive Date: 20131216
  Receipt Date: 20150806
  Transmission Date: 20151125
  Serious: No
  Sender: FDA-Public Use
  Company Number: US-GILEAD-2010-0029503

PATIENT
  Age: 43 Year
  Sex: Female
  Weight: 55.79 kg

DRUGS (13)
  1. LETAIRIS [Suspect]
     Active Substance: AMBRISENTAN
     Indication: PULMONARY ARTERIAL HYPERTENSION
     Route: 048
     Dates: start: 20100325
  2. DIPHENHYDRAMINE. [Concomitant]
     Active Substance: DIPHENHYDRAMINE
  3. GLEEVEC [Concomitant]
     Active Substance: IMATINIB MESYLATE
  4. DOPAMINE [Concomitant]
     Active Substance: DOPAMINE\DOPAMINE HYDROCHLORIDE
  5. POTASSIUM [Concomitant]
     Active Substance: POTASSIUM
  6. MIDODRINE [Concomitant]
     Active Substance: MIDODRINE
  7. LASIX [Concomitant]
     Active Substance: FUROSEMIDE
  8. COUMADIN [Concomitant]
     Active Substance: WARFARIN SODIUM
  9. REVATIO [Concomitant]
     Active Substance: SILDENAFIL CITRATE
  10. FLONASE [Concomitant]
     Active Substance: FLUTICASONE PROPIONATE
  11. OXYGEN. [Concomitant]
     Active Substance: OXYGEN
  12. DEPO-PROVERA [Concomitant]
     Active Substance: MEDROXYPROGESTERONE ACETATE
  13. ZOFRAN [Concomitant]
     Active Substance: ONDANSETRON HYDROCHLORIDE

REACTIONS (1)
  - Syncope [Unknown]
